FAERS Safety Report 20895377 (Version 4)
Quarter: 2023Q4

REPORT INFORMATION
  Report Type: Report from Study
  Country: CO (occurrence: CO)
  Receive Date: 20220531
  Receipt Date: 20231228
  Transmission Date: 20240109
  Serious: Yes (Other)
  Sender: FDA-Public Use
  Company Number: CO-TAKEDA-2022TUS036054

PATIENT
  Age: 40 Year
  Sex: Male
  Weight: 80 kg

DRUGS (1)
  1. VEDOLIZUMAB [Suspect]
     Active Substance: VEDOLIZUMAB
     Indication: Colitis ulcerative
     Dosage: 300 MILLIGRAM
     Route: 042
     Dates: start: 20220408

REACTIONS (7)
  - Diarrhoea haemorrhagic [Unknown]
  - Haematochezia [Unknown]
  - Weight fluctuation [Unknown]
  - Diarrhoea [Unknown]
  - Mucous stools [Unknown]
  - Proctalgia [Unknown]
  - Abdominal pain [Unknown]

NARRATIVE: CASE EVENT DATE: 20231003
